FAERS Safety Report 10053496 (Version 1)
Quarter: 2014Q2

REPORT INFORMATION
  Report Type: Spontaneous
  Country: CH (occurrence: CH)
  Receive Date: 20140402
  Receipt Date: 20140402
  Transmission Date: 20141212
  Serious: Yes (Hospitalization)
  Sender: FDA-Public Use
  Company Number: CH-ABBVIE-14P-151-1218644-00

PATIENT
  Age: 72 Year
  Sex: Female

DRUGS (11)
  1. HUMIRA [Suspect]
     Indication: VASCULITIS
     Route: 058
     Dates: start: 20140129, end: 20140129
  2. PREDNISONE [Suspect]
     Indication: VASCULITIS
     Route: 048
  3. PREDNISONE [Suspect]
     Dates: start: 20140123, end: 20140128
  4. PREDNISONE [Suspect]
     Dates: start: 20140129
  5. PREDNISONE [Suspect]
  6. SINTROM [Concomitant]
     Indication: DEEP VEIN THROMBOSIS
     Dosage: CYCLICAL
     Route: 048
  7. DAFALGAN [Concomitant]
     Indication: HEADACHE
     Route: 048
  8. CO-DAFALGAN [Concomitant]
     Indication: HEADACHE
     Route: 048
  9. CEPHYL [Concomitant]
     Indication: HEADACHE
     Route: 048
  10. CALCIMAGON D3 [Concomitant]
     Indication: PROPHYLACTIC CHEMOTHERAPY
     Route: 048
  11. FOSAMAX [Concomitant]
     Indication: PROPHYLACTIC CHEMOTHERAPY
     Route: 048

REACTIONS (19)
  - General physical health deterioration [Unknown]
  - Sepsis syndrome [Recovered/Resolved]
  - Pneumonia [Recovered/Resolved]
  - Sialoadenitis [Recovered/Resolved]
  - Injection site induration [Recovering/Resolving]
  - Injection site pain [Recovering/Resolving]
  - Injection site erythema [Recovering/Resolving]
  - Injection site inflammation [Recovering/Resolving]
  - Gait disturbance [Recovering/Resolving]
  - Rash pustular [Recovering/Resolving]
  - Leukopenia [Recovering/Resolving]
  - Neutropenia [Recovering/Resolving]
  - Thrombocytopenia [Recovering/Resolving]
  - Off label use [Recovered/Resolved]
  - Feeling of body temperature change [Unknown]
  - Candida infection [Unknown]
  - Pustular psoriasis [Recovering/Resolving]
  - Acute febrile neutrophilic dermatosis [Recovering/Resolving]
  - Dehydration [Unknown]
